FAERS Safety Report 15402145 (Version 1)
Quarter: 2018Q3

REPORT INFORMATION
  Report Type: Spontaneous
  Country: FR (occurrence: FR)
  Receive Date: 20180919
  Receipt Date: 20180919
  Transmission Date: 20181010
  Serious: Yes (Hospitalization)
  Sender: FDA-Public Use
  Company Number: FR-PFIZER INC-2018372445

PATIENT
  Age: 83 Year
  Sex: Male
  Weight: 86 kg

DRUGS (2)
  1. LEVOTHYROX [Concomitant]
     Active Substance: LEVOTHYROXINE
  2. DOSTINEX [Suspect]
     Active Substance: CABERGOLINE
     Indication: PITUITARY TUMOUR BENIGN
     Dosage: 0.5 MG, 1X/DAY
     Route: 048
     Dates: start: 20050329, end: 20180228

REACTIONS (1)
  - Aortic valve disease [Recovering/Resolving]

NARRATIVE: CASE EVENT DATE: 20180123
